FAERS Safety Report 5556480-1 (Version None)
Quarter: 2007Q4

REPORT INFORMATION
  Report Type: 
  Country: None (occurrence: None)
  Receive Date: 20071213
  Receipt Date: 20070912
  Transmission Date: 20080405
  Serious: No
  Sender: FDA-Public Use
  Company Number: US-AMGEN-KDL242366

PATIENT
  Sex: Female

DRUGS (2)
  1. ENBREL [Suspect]
     Indication: RHEUMATOID ARTHRITIS
     Route: 058
     Dates: start: 20060501
  2. METHOTREXATE [Concomitant]
     Route: 048
     Dates: start: 20050101

REACTIONS (9)
  - ASTHENIA [None]
  - CHEST PAIN [None]
  - DIZZINESS [None]
  - INJECTION SITE PAIN [None]
  - NAUSEA [None]
  - PALPITATIONS [None]
  - RETCHING [None]
  - RHEUMATOID ARTHRITIS [None]
  - VOMITING [None]
